FAERS Safety Report 9834937 (Version 7)
Quarter: 2014Q1

REPORT INFORMATION
  Report Type: Report from Study
  Country: IE (occurrence: IE)
  Receive Date: 20140122
  Receipt Date: 20140305
  Transmission Date: 20141002
  Serious: Yes (Hospitalization)
  Sender: FDA-Public Use
  Company Number: IE-GLAXOSMITHKLINE-B0962396A

PATIENT
  Age: 59 Year
  Sex: Male
  Weight: 88.7 kg

DRUGS (9)
  1. PAZOPANIB [Suspect]
     Indication: RENAL CELL CARCINOMA
     Route: 048
     Dates: start: 20131231
  2. ATORVASTATIN [Concomitant]
     Indication: BLOOD CHOLESTEROL
     Dosage: 10MG PER DAY
     Route: 048
  3. IMDUR [Concomitant]
     Indication: HYPERTENSION
     Dosage: 60MG PER DAY
     Route: 048
  4. ASPIRIN [Concomitant]
     Route: 048
  5. METOPROLOL [Concomitant]
     Dosage: 25MG PER DAY
     Route: 048
     Dates: start: 20131231
  6. VALOID [Concomitant]
     Indication: PROPHYLAXIS OF NAUSEA AND VOMITING
     Dosage: 150MG PER DAY
     Route: 048
     Dates: start: 20131231
  7. MOTILIUM [Concomitant]
     Dosage: 60MG PER DAY
     Route: 048
     Dates: start: 20131231
  8. ESOMEPRAZOLE [Concomitant]
     Route: 048
  9. CYCLIZINE [Concomitant]
     Indication: NAUSEA
     Dates: start: 20131231

REACTIONS (6)
  - Vomiting [Recovered/Resolved]
  - Nausea [Recovered/Resolved]
  - Constipation [Recovered/Resolved]
  - Hypertension [Recovered/Resolved]
  - Headache [Recovered/Resolved]
  - Blood creatinine increased [Recovered/Resolved with Sequelae]
